FAERS Safety Report 16946862 (Version 1)
Quarter: 2019Q4

REPORT INFORMATION
  Report Type: Spontaneous
  Country: US (occurrence: US)
  Receive Date: 20191022
  Receipt Date: 20191022
  Transmission Date: 20200122
  Serious: Yes (Hospitalization)
  Sender: FDA-Public Use
  Company Number: US-ASTRAZENECA-2019SF47697

PATIENT
  Age: 77 Year
  Sex: Male

DRUGS (2)
  1. IMFINZI [Suspect]
     Active Substance: DURVALUMAB
     Indication: NON-SMALL CELL LUNG CANCER STAGE III
     Dosage: 10.0UG/KG UNKNOWN
     Route: 042
     Dates: start: 20190904
  2. PREDNISONE. [Concomitant]
     Active Substance: PREDNISONE
     Dosage: 1.0MG/KG UNKNOWN

REACTIONS (2)
  - Haemoglobin abnormal [Unknown]
  - Haemolysis [Unknown]
